FAERS Safety Report 14435142 (Version 9)
Quarter: 2018Q3

REPORT INFORMATION
  Report Type: Report from Study
  Country: None (occurrence: US)
  Receive Date: 20180125
  Receipt Date: 20180907
  Transmission Date: 20181010
  Serious: Yes (Other)
  Sender: FDA-Public Use
  Company Number: US-ABBVIE-17K-163-2202234-00

PATIENT
  Sex: Female

DRUGS (2)
  1. HUMIRA [Suspect]
     Active Substance: ADALIMUMAB
     Indication: PSORIATIC ARTHROPATHY
     Route: 058
     Dates: start: 20180515
  2. HUMIRA [Suspect]
     Active Substance: ADALIMUMAB
     Indication: PSORIASIS
     Route: 058
     Dates: end: 20171228

REACTIONS (16)
  - Uterine cancer [Not Recovered/Not Resolved]
  - Thyroid cancer [Recovering/Resolving]
  - Pain [Not Recovered/Not Resolved]
  - Back pain [Recovering/Resolving]
  - Squamous cell carcinoma of skin [Not Recovered/Not Resolved]
  - Cardiac disorder [Unknown]
  - Procedural complication [Unknown]
  - Arthralgia [Recovering/Resolving]
  - Stress [Unknown]
  - Sensitivity to weather change [Not Recovered/Not Resolved]
  - Depression [Not Recovered/Not Resolved]
  - Insomnia [Unknown]
  - Psoriasis [Not Recovered/Not Resolved]
  - Hypoaesthesia [Recovered/Resolved]
  - Sciatica [Not Recovered/Not Resolved]
  - Paraesthesia [Recovered/Resolved]

NARRATIVE: CASE EVENT DATE: 2017
